FAERS Safety Report 4673005-3 (Version None)
Quarter: 2005Q2

REPORT INFORMATION
  Report Type: 
  Country: None (occurrence: None)
  Receive Date: 20050524
  Receipt Date: 20050518
  Transmission Date: 20051028
  Serious: Yes (Life-Threatening, Hospitalization)
  Sender: FDA-Public Use
  Company Number: 05-05-0855

PATIENT
  Age: 44 Year
  Sex: Male
  Weight: 85.7298 kg

DRUGS (4)
  1. CLOZAPINE TABLETS - IVAX PHARMACEUTICALS, INC [Suspect]
     Indication: AFFECTIVE DISORDER
     Dosage: 50MG HS ORAL
     Route: 048
     Dates: start: 20050320
  2. IBUPROFEN [Suspect]
     Indication: PAIN
     Dosage: 600-800MG TID
  3. DEPAKOTE [Concomitant]
  4. ZOLOFT [Concomitant]

REACTIONS (2)
  - GLOMERULONEPHRITIS ACUTE [None]
  - RENAL FAILURE [None]
